FAERS Safety Report 8291566-2 (Version None)
Quarter: 2012Q2

REPORT INFORMATION
  Report Type: 
  Country: None (occurrence: None)
  Receive Date: 20120417
  Receipt Date: 20120409
  Transmission Date: 20120825
  Serious: Yes (Hospitalization, Other)
  Sender: FDA-Public Use
  Company Number: US-ELI_LILLY_AND_COMPANY-US201204003053

PATIENT
  Age: 44 Year
  Sex: Male

DRUGS (2)
  1. HUMULIN R [Suspect]
     Dosage: UNK, UNKNOWN
  2. HUMULIN N [Suspect]
     Dosage: UNK, UNKNOWN

REACTIONS (4)
  - RENAL FAILURE [None]
  - DIABETIC KETOACIDOSIS [None]
  - RETINAL OEDEMA [None]
  - VISUAL IMPAIRMENT [None]
